FAERS Safety Report 9214364 (Version 1)
Quarter: 2013Q2

REPORT INFORMATION
  Report Type: Spontaneous
  Country: CR (occurrence: CR)
  Receive Date: 20130405
  Receipt Date: 20130405
  Transmission Date: 20140414
  Serious: Yes (Other)
  Sender: FDA-Public Use
  Company Number: CR-ROCHE-1194429

PATIENT
  Age: 23 Year
  Sex: Male

DRUGS (2)
  1. ROACCUTANE [Suspect]
     Indication: ACNE
     Route: 048
     Dates: end: 201111
  2. ROACCUTANE [Suspect]
     Route: 048
     Dates: start: 20121003, end: 20130213

REACTIONS (1)
  - Uveitis [Recovering/Resolving]
